FAERS Safety Report 12135938 (Version 1)
Quarter: 2016Q1

REPORT INFORMATION
  Report Type: Report from Study
  Country: IT (occurrence: IT)
  Receive Date: 20160302
  Receipt Date: 20160302
  Transmission Date: 20160526
  Serious: Yes (Hospitalization)
  Sender: FDA-Public Use
  Company Number: IT-ROCHE-1719388

PATIENT
  Age: 77 Year
  Sex: Female

DRUGS (9)
  1. ATENOLOLO [Concomitant]
     Active Substance: ATENOLOL
     Route: 065
  2. SPIRIVA [Concomitant]
     Active Substance: TIOTROPIUM BROMIDE MONOHYDRATE
     Route: 048
  3. ESBRIET [Suspect]
     Active Substance: PIRFENIDONE
     Indication: IDIOPATHIC PULMONARY FIBROSIS
     Dosage: 9 CAPSULES DAILY
     Route: 048
     Dates: start: 20150708
  4. ZANTIPRIDE [Concomitant]
     Active Substance: ZOFENOPRIL
     Route: 065
  5. PLENDIL [Concomitant]
     Active Substance: FELODIPINE
     Route: 048
  6. DEURSIL [Concomitant]
     Active Substance: URSODIOL
     Route: 048
  7. PROCORALAN [Concomitant]
     Active Substance: IVABRADINE
     Route: 065
  8. SOLOSA [Concomitant]
     Active Substance: GLIMEPIRIDE
     Route: 065
  9. JANUMET [Concomitant]
     Active Substance: METFORMIN HYDROCHLORIDE\SITAGLIPTIN PHOSPHATE
     Route: 048

REACTIONS (3)
  - Asthenia [Recovering/Resolving]
  - Dyspnoea [Recovering/Resolving]
  - Decreased appetite [Recovering/Resolving]

NARRATIVE: CASE EVENT DATE: 20160220
